FAERS Safety Report 8277321-8 (Version None)
Quarter: 2012Q2

REPORT INFORMATION
  Report Type: 
  Country: None (occurrence: None)
  Receive Date: 20120412
  Receipt Date: 20120402
  Transmission Date: 20120825
  Serious: Yes (Death)
  Sender: FDA-Public Use
  Company Number: FR-GLAXOSMITHKLINE-B0792582A

PATIENT
  Sex: Female

DRUGS (9)
  1. IV REHYDRATION [Concomitant]
     Indication: ASTHMATIC CRISIS
     Route: 042
     Dates: start: 20120209
  2. BRICANYL [Suspect]
     Indication: PAINFUL RESPIRATION
     Dosage: .5MG SINGLE DOSE
     Route: 058
     Dates: start: 20120210, end: 20120210
  3. PREDNISOLONE [Suspect]
     Indication: PAINFUL RESPIRATION
     Dosage: 60MG PER DAY
     Route: 048
     Dates: start: 20120210, end: 20120210
  4. XOLAIR [Suspect]
     Indication: ASTHMA
     Route: 042
     Dates: start: 20120101, end: 20120201
  5. DESLORATADINE [Concomitant]
     Indication: ASTHMA
     Route: 048
  6. PULMICORT [Concomitant]
     Indication: ASTHMA
  7. VENTOLIN [Suspect]
     Indication: PAINFUL RESPIRATION
     Route: 055
     Dates: start: 20120201, end: 20120210
  8. SINGULAIR [Concomitant]
     Indication: ASTHMA
  9. MAGNESIUM SULFATE [Concomitant]
     Indication: ASTHMATIC CRISIS
     Route: 042
     Dates: start: 20120209

REACTIONS (3)
  - ANXIETY [None]
  - CYANOSIS [None]
  - CARDIO-RESPIRATORY ARREST [None]
